FAERS Safety Report 8534035-4 (Version None)
Quarter: 2012Q2

REPORT INFORMATION
  Report Type: 
  Country: None (occurrence: None)
  Receive Date: 20120629
  Receipt Date: 20120621
  Transmission Date: 20120825
  Serious: Yes (Hospitalization)
  Sender: FDA-Public Use
  Company Number: 2012PROUSA01504

PATIENT
  Age: 72 Year
  Sex: Male
  Weight: 86.2 kg

DRUGS (5)
  1. PROVENGE [Suspect]
     Indication: PROSTATE CANCER METASTATIC
     Dosage: 250ML, SINGLE, INTRAVENOUS
     Route: 042
     Dates: start: 20120525, end: 20120525
  2. MOTRIN [Concomitant]
  3. LUPRON [Concomitant]
  4. IMODIUM [Concomitant]
  5. PLAQUENIL [Concomitant]

REACTIONS (1)
  - STREPTOCOCCAL SEPSIS [None]
